FAERS Safety Report 5740440-1 (Version None)
Quarter: 2008Q2

REPORT INFORMATION
  Report Type: 
  Country: None (occurrence: None)
  Receive Date: 20080516
  Receipt Date: 20080509
  Transmission Date: 20081010
  Serious: Yes (Hospitalization)
  Sender: FDA-Public Use
  Company Number: US-GENENTECH-260842

PATIENT
  Sex: Female
  Weight: 69.2 kg

DRUGS (8)
  1. TENECTEPLASE [Suspect]
     Indication: INDWELLING CATHETER MANAGEMENT
     Dosage: 2 ML, UNK
     Route: 050
     Dates: start: 20080115
  2. TENECTEPLASE [Suspect]
     Dosage: 2 ML, UNK
     Route: 050
     Dates: start: 20080115
  3. COZAAR [Concomitant]
     Indication: DRUG USE FOR UNKNOWN INDICATION
     Route: 048
  4. HUMALOG [Concomitant]
     Indication: DRUG USE FOR UNKNOWN INDICATION
     Route: 058
  5. HYDRALAZINE HCL [Concomitant]
     Indication: DRUG USE FOR UNKNOWN INDICATION
     Route: 048
  6. RENAGEL [Concomitant]
     Indication: DRUG USE FOR UNKNOWN INDICATION
     Route: 048
  7. RENAL CAPS [Concomitant]
     Indication: DRUG USE FOR UNKNOWN INDICATION
     Route: 048
  8. SENSIPAR [Concomitant]
     Indication: DRUG USE FOR UNKNOWN INDICATION
     Route: 048

REACTIONS (1)
  - BACTERAEMIA [None]
